FAERS Safety Report 20195498 (Version 2)
Quarter: 2022Q1

REPORT INFORMATION
  Report Type: Report from Study
  Country: US (occurrence: US)
  Receive Date: 20211216
  Receipt Date: 20220209
  Transmission Date: 20220424
  Serious: Yes (Hospitalization, Other)
  Sender: FDA-Public Use
  Company Number: US-TAKEDA-US201908187

PATIENT
  Sex: Female

DRUGS (1)
  1. HUMAN IMMUNOGLOBULIN G [Suspect]
     Active Substance: HUMAN IMMUNOGLOBULIN G
     Indication: Primary immunodeficiency syndrome
     Dosage: UNK
     Route: 042

REACTIONS (8)
  - Neoplasm [Unknown]
  - Diabetes mellitus [Unknown]
  - Illness [Unknown]
  - Gait disturbance [Unknown]
  - Visual impairment [Unknown]
  - Multiple allergies [Unknown]
  - COVID-19 [Unknown]
  - Therapy interrupted [Unknown]
